FAERS Safety Report 9718585 (Version 3)
Quarter: 2014Q1

REPORT INFORMATION
  Report Type: Report from Study
  Country: US (occurrence: US)
  Receive Date: 20131127
  Receipt Date: 20140326
  Transmission Date: 20141002
  Serious: Yes (Other)
  Sender: FDA-Public Use
  Company Number: US-BRISTOL-MYERS SQUIBB COMPANY-19836154

PATIENT
  Age: 63 Year
  Sex: Male
  Weight: 84.3 kg

DRUGS (4)
  1. NIVOLUMAB [Suspect]
     Indication: METASTATIC MALIGNANT MELANOMA
     Dosage: INTER ON 14OCT13
     Route: 042
     Dates: start: 20130808
  2. IPILIMUMAB [Suspect]
     Indication: METASTATIC MALIGNANT MELANOMA
     Route: 042
     Dates: start: 20131104
  3. TYLENOL [Concomitant]
     Indication: PREMEDICATION
     Dates: start: 20130905
  4. BENADRYL [Concomitant]
     Indication: PREMEDICATION
     Dates: start: 20130905

REACTIONS (2)
  - Headache [Recovered/Resolved]
  - Hypophysitis [Recovered/Resolved with Sequelae]
